FAERS Safety Report 6567713-7 (Version None)
Quarter: 2010Q1

REPORT INFORMATION
  Report Type: 
  Country: None (occurrence: None)
  Receive Date: 20100203
  Receipt Date: 20100126
  Transmission Date: 20100710
  Serious: Yes (Other)
  Sender: FDA-Public Use
  Company Number: FR-PFIZER INC-2010009473

PATIENT
  Sex: Male

DRUGS (8)
  1. XALATAN [Suspect]
     Indication: GLAUCOMA
     Dosage: UNK
     Route: 047
  2. LEVOTHYROXINE SODIUM [Concomitant]
  3. METFORMIN HCL/PIOGLITAZONE HCL [Concomitant]
     Dosage: 15MG/850
  4. NAFTIDROFURYL [Concomitant]
     Dosage: 200 UNK, UNK
  5. ALLOPURINOL [Concomitant]
     Dosage: 200 UNK, UNK
  6. CADUET [Concomitant]
     Dosage: 5/10MG
  7. ALTIZIDE W/SPIRONOLACTONE [Concomitant]
     Dosage: 25/15
  8. METFORMIN [Concomitant]
     Dosage: 50 UNK, UNK

REACTIONS (2)
  - DIABETES MELLITUS [None]
  - VERTIGO [None]
